FAERS Safety Report 6620079-6 (Version None)
Quarter: 2010Q1

REPORT INFORMATION
  Report Type: 
  Country: None (occurrence: None)
  Receive Date: 20100309
  Receipt Date: 20100301
  Transmission Date: 20100710
  Serious: Yes (Hospitalization)
  Sender: FDA-Public Use
  Company Number: US-ROCHE-688105

PATIENT
  Age: 57 Year
  Sex: Female

DRUGS (5)
  1. VALIUM [Suspect]
     Indication: SLEEP DISORDER
     Route: 065
  2. VOLTAREN [Suspect]
     Indication: OSTEOPOROSIS
     Route: 061
     Dates: start: 20100101
  3. PRAVASTATIN SODIUM [Suspect]
     Indication: DRUG USE FOR UNKNOWN INDICATION
     Route: 065
  4. PERCOCET [Suspect]
     Indication: DRUG USE FOR UNKNOWN INDICATION
     Route: 065
  5. DETROL [Suspect]
     Indication: BLADDER DISORDER
     Route: 065

REACTIONS (2)
  - HEPATIC ENZYME INCREASED [None]
  - HYPOGLYCAEMIA [None]
